FAERS Safety Report 7027956-5 (Version None)
Quarter: 2010Q4

REPORT INFORMATION
  Report Type: 
  Country: None (occurrence: None)
  Receive Date: 20101005
  Receipt Date: 20100922
  Transmission Date: 20110411
  Serious: Yes (Hospitalization)
  Sender: FDA-Public Use
  Company Number: ES-ELI_LILLY_AND_COMPANY-ES201009007098

PATIENT
  Sex: Female
  Weight: 61 kg

DRUGS (11)
  1. FORTEO [Suspect]
     Indication: OSTEOPOROSIS
     Dosage: 20 UG, DAILY (1/D)
     Route: 058
     Dates: start: 20100614
  2. FORTEO [Suspect]
     Dosage: UNK, UNKNOWN
     Route: 065
     Dates: start: 20100920
  3. ACIDO ALENDRONICO [Concomitant]
     Indication: OSTEOPOROSIS
     Dosage: 1TAB, WEEKLY (1/W)
     Route: 048
     Dates: start: 20090101
  4. LACRIMAL [Concomitant]
     Indication: DRY EYE
     Dosage: UNK, AS NEEDED
     Route: 065
  5. IDEOS [Concomitant]
     Indication: OSTEOPOROSIS
     Dosage: 2TAB, 2/D
     Route: 048
     Dates: start: 20090101
  6. OMEPRAZOLE [Concomitant]
     Indication: GASTRIC DISORDER
     Dosage: 1TAB, DAILY (1/D)
     Route: 048
     Dates: start: 20090101
  7. PRITOR [Concomitant]
     Indication: HYPERTENSION
     Dosage: 1TAB, DAILY (1/D)
     Route: 048
     Dates: start: 20070101
  8. SUTRIL [Concomitant]
     Indication: HYPERTENSION
     Dosage: 1TAB, DAILY (1/D)
     Route: 048
     Dates: start: 20070101
  9. ENANTYUM [Concomitant]
     Indication: PAIN
     Dosage: 1TAB/12HRS IF NEEDED
     Route: 048
     Dates: start: 20090101
  10. TONOPAN [Concomitant]
     Indication: HEADACHE
     Dosage: UNK, IF NEEDED
     Route: 048
     Dates: start: 20050101
  11. FERPLEX [Concomitant]
     Dosage: 1TAB, DAILY (1/D)
     Route: 048
     Dates: start: 20070101

REACTIONS (4)
  - DISCOMFORT [None]
  - HYPERGLYCAEMIA [None]
  - NAUSEA [None]
  - VOMITING [None]
